FAERS Safety Report 4528534-X (Version None)
Quarter: 2004Q4

REPORT INFORMATION
  Report Type: 
  Country: None (occurrence: None)
  Receive Date: 20041216
  Receipt Date: 20040917
  Transmission Date: 20050328
  Serious: No
  Sender: FDA-Public Use
  Company Number: US-BRISTOL-MYERS SQUIBB COMPANY-12707121

PATIENT
  Sex: Male

DRUGS (1)
  1. QUESTRAN [Suspect]
     Indication: DIARRHOEA
     Dosage: DOSAGE FORM = SCOOPS

REACTIONS (2)
  - ARTHRALGIA [None]
  - MYALGIA [None]
